FAERS Safety Report 8265108-1 (Version None)
Quarter: 2012Q2

REPORT INFORMATION
  Report Type: 
  Country: None (occurrence: None)
  Receive Date: 20120406
  Receipt Date: 20120403
  Transmission Date: 20120825
  Serious: No
  Sender: FDA-Public Use
  Company Number: US-PFIZER INC-2012084477

PATIENT
  Sex: Female
  Weight: 62.132 kg

DRUGS (4)
  1. XANAX [Suspect]
     Indication: ANXIETY
     Dosage: 0.5 MG, AS NEEDED
     Route: 048
  2. PROTONIX [Suspect]
     Indication: GASTROOESOPHAGEAL REFLUX DISEASE
     Dosage: 40 MG, 1X/DAY
     Route: 048
  3. ESTRADIOL [Suspect]
     Indication: HYSTERECTOMY
     Dosage: 0.25 MG, 1X/DAY
     Route: 048
  4. CALCIUM CARBONATE [Concomitant]
     Dosage: UNK

REACTIONS (2)
  - RENAL DISORDER [None]
  - LIVER DISORDER [None]
